FAERS Safety Report 5861194 (Version 4)
Quarter: 2013Q2

REPORT INFORMATION
  Report Type: Spontaneous
  Country: FR (occurrence: FR)
  Receive Date: 20050816
  Receipt Date: 20130627
  Transmission Date: 20140414
  Serious: Yes (Hospitalization, Other)
  Sender: FDA-Public Use
  Company Number: FR-RB-1964-2005

PATIENT
  Age: 0 Year
  Sex: Male
  Weight: 2.6 kg

DRUGS (1)
  1. SUBUTEX [Suspect]
     Indication: DRUG DEPENDENCE
     Dosage: UNKNOWN DOSAGE
     Route: 064

REACTIONS (5)
  - Pneumothorax [Recovered/Resolved]
  - Neonatal respiratory distress syndrome [Recovered/Resolved]
  - Drug withdrawal syndrome neonatal [Recovered/Resolved]
  - Premature baby [Recovered/Resolved]
  - Foetal exposure during pregnancy [Recovered/Resolved]
